FAERS Safety Report 13220642 (Version 1)
Quarter: 2017Q1

REPORT INFORMATION
  Report Type: Spontaneous
  Country: US (occurrence: US)
  Receive Date: 20170211
  Receipt Date: 20170211
  Transmission Date: 20170428
  Serious: No
  Sender: FDA-Public Use
  Company Number: US-ACORDA-ACO_128534_2016

PATIENT

DRUGS (3)
  1. AMPYRA [Suspect]
     Active Substance: DALFAMPRIDINE
     Dosage: 10 MG, BID
     Route: 048
  2. AMPYRA [Suspect]
     Active Substance: DALFAMPRIDINE
     Dosage: 10 MG, QD
     Route: 048
  3. AMPYRA [Suspect]
     Active Substance: DALFAMPRIDINE
     Indication: MULTIPLE SCLEROSIS
     Dosage: 10 MG, BID
     Route: 048
     Dates: start: 201608

REACTIONS (17)
  - Weight decreased [Recovered/Resolved]
  - Vocal cord disorder [Not Recovered/Not Resolved]
  - Paraesthesia [Recovered/Resolved]
  - Hypoaesthesia [Recovered/Resolved]
  - Feeding disorder [Recovered/Resolved]
  - Throat irritation [Not Recovered/Not Resolved]
  - Abdominal pain upper [Unknown]
  - Eructation [Recovered/Resolved]
  - Dysphonia [Not Recovered/Not Resolved]
  - Nausea [Recovered/Resolved]
  - Bursitis [Unknown]
  - Malaise [Recovered/Resolved]
  - Dizziness [Unknown]
  - Visual impairment [Unknown]
  - Hyperhidrosis [Recovered/Resolved]
  - Gastrooesophageal reflux disease [Unknown]
  - Pain in jaw [Not Recovered/Not Resolved]
